FAERS Safety Report 7709105-0 (Version None)
Quarter: 2011Q3

REPORT INFORMATION
  Report Type: 
  Country: None (occurrence: None)
  Receive Date: 20110825
  Receipt Date: 20110811
  Transmission Date: 20111222
  Serious: Yes (Life-Threatening)
  Sender: FDA-Public Use
  Company Number: FR-ROCHE-796119

PATIENT
  Age: 75 Year
  Sex: Female

DRUGS (1)
  1. VALIUM [Suspect]
     Indication: AGITATION
     Dosage: DRUG REPORTED AS VALIUM, INFUSION.   FORM: INFUSION
     Route: 042
     Dates: start: 20110204, end: 20110205

REACTIONS (2)
  - ASPIRATION [None]
  - HYPERCAPNIC ENCEPHALOPATHY [None]
